FAERS Safety Report 10872843 (Version 1)
Quarter: 2015Q1

REPORT INFORMATION
  Report Type: Spontaneous
  Country: US (occurrence: None)
  Receive Date: 20150223
  Receipt Date: 20150223
  Transmission Date: 20150721
  Serious: Yes (Death, Hospitalization)
  Sender: FDA-Public Use
  Company Number: None

PATIENT
  Age: 57 Year
  Sex: Male
  Weight: 95.5 kg

DRUGS (3)
  1. CARBOPLATIN. [Suspect]
     Active Substance: CARBOPLATIN
     Dates: end: 20141030
  2. TAXOL [Suspect]
     Active Substance: PACLITAXEL
     Dates: end: 20141030
  3. BEVACIZUMAB (RHUMABVEGE) [Suspect]
     Active Substance: BEVACIZUMAB
     Dates: end: 20141030

REACTIONS (1)
  - Pulmonary embolism [None]

NARRATIVE: CASE EVENT DATE: 20141111
